FAERS Safety Report 23747377 (Version 2)
Quarter: 2024Q2

REPORT INFORMATION
  Report Type: Spontaneous
  Country: JP (occurrence: JP)
  Receive Date: 20240416
  Receipt Date: 20240422
  Transmission Date: 20240715
  Serious: Yes (Hospitalization, Other)
  Sender: FDA-Public Use
  Company Number: JP-PFIZER INC-PV202400048386

PATIENT
  Age: 3 Decade
  Sex: Male

DRUGS (2)
  1. INFLIXIMAB [Suspect]
     Active Substance: INFLIXIMAB
     Indication: Colitis ulcerative
     Dosage: UNK
     Route: 042
  2. AZATHIOPRINE [Suspect]
     Active Substance: AZATHIOPRINE
     Indication: Colitis ulcerative
     Dosage: UNK
     Route: 048

REACTIONS (5)
  - Hepatosplenic T-cell lymphoma [Recovering/Resolving]
  - Respiratory tract inflammation [Recovering/Resolving]
  - Hepatic function abnormal [Recovering/Resolving]
  - Pancytopenia [Recovering/Resolving]
  - Lymphocyte count abnormal [Recovering/Resolving]
